FAERS Safety Report 18533058 (Version 1)
Quarter: 2020Q4

REPORT INFORMATION
  Report Type: Spontaneous
  Country: US (occurrence: US)
  Receive Date: 20201120
  Receipt Date: 20201120
  Transmission Date: 20210114
  Serious: Yes (Hospitalization)
  Sender: FDA-Public Use
  Company Number: None

PATIENT
  Age: 57 Year
  Sex: Male

DRUGS (1)
  1. XELJANZ XR [Suspect]
     Active Substance: TOFACITINIB CITRATE
     Indication: RHEUMATOID ARTHRITIS
     Route: 048
     Dates: start: 20181226

REACTIONS (6)
  - Groin pain [None]
  - Abdominal pain lower [None]
  - Blood urine present [None]
  - Hernia [None]
  - Rheumatoid arthritis [None]
  - Loss of personal independence in daily activities [None]
